FAERS Safety Report 5972520-X (Version None)
Quarter: 2008Q4

REPORT INFORMATION
  Report Type: 
  Country: None (occurrence: None)
  Receive Date: 20081201
  Receipt Date: 20081126
  Transmission Date: 20090506
  Serious: Yes (Hospitalization)
  Sender: FDA-Public Use
  Company Number: B0543643A

PATIENT
  Age: 81 Year
  Sex: Male

DRUGS (3)
  1. AMOXICILLIN TRIHYDRATE [Suspect]
     Dosage: 1G TWICE PER DAY
     Route: 048
     Dates: start: 20080918, end: 20080920
  2. OROKEN [Concomitant]
     Dosage: 200MG TWICE PER DAY
     Route: 048
     Dates: start: 20080920, end: 20080923
  3. SOLUPRED [Concomitant]
     Dosage: 40MG PER DAY
     Route: 048
     Dates: start: 20080920, end: 20080923

REACTIONS (7)
  - DYSARTHRIA [None]
  - HEMIPLEGIA [None]
  - PURPURA [None]
  - RENAL FAILURE ACUTE [None]
  - SKIN LESION [None]
  - TOXIC SKIN ERUPTION [None]
  - VASCULITIS [None]
